FAERS Safety Report 4401226-3 (Version None)
Quarter: 2004Q3

REPORT INFORMATION
  Report Type: 
  Country: None (occurrence: None)
  Receive Date: 20040907
  Receipt Date: 20040107
  Transmission Date: 20050211
  Serious: No
  Sender: FDA-Public Use
  Company Number: US-BRISTOL-MYERS SQUIBB COMPANY-12472296

PATIENT
  Age: 62 Year
  Sex: Female
  Weight: 102 kg

DRUGS (9)
  1. COUMADIN [Suspect]
     Indication: PULMONARY EMBOLISM
     Route: 048
     Dates: start: 20031021
  2. AVAPRO [Concomitant]
  3. VITAMIN D [Concomitant]
  4. ECHINACEA [Concomitant]
  5. VITAMIN C [Concomitant]
  6. EQUATE [Concomitant]
  7. MULTI-VITAMIN [Concomitant]
  8. MAGNESIUM [Concomitant]
  9. VIOXX [Concomitant]

REACTIONS (3)
  - MUSCLE CRAMP [None]
  - PAIN IN EXTREMITY [None]
  - PROTHROMBIN TIME PROLONGED [None]
